FAERS Safety Report 6861623-3 (Version None)
Quarter: 2010Q3

REPORT INFORMATION
  Report Type: 
  Country: None (occurrence: None)
  Receive Date: 20100721
  Receipt Date: 20100713
  Transmission Date: 20110219
  Serious: Yes (Hospitalization)
  Sender: FDA-Public Use
  Company Number: 2007BI023362

PATIENT
  Age: 36 Year
  Sex: Female
  Weight: 74 kg

DRUGS (2)
  1. AVONEX [Suspect]
     Indication: MULTIPLE SCLEROSIS
     Route: 030
     Dates: start: 20030101, end: 20071114
  2. AVONEX [Suspect]
     Route: 030
     Dates: start: 19990101, end: 20030101

REACTIONS (5)
  - DEVICE ISSUE [None]
  - FEELING JITTERY [None]
  - MUSCLE NECROSIS [None]
  - MYOFASCITIS [None]
  - RAYNAUD'S PHENOMENON [None]
